FAERS Safety Report 15978494 (Version 1)
Quarter: 2019Q1

REPORT INFORMATION
  Report Type: Spontaneous
  Country: GB (occurrence: GB)
  Receive Date: 20190219
  Receipt Date: 20190219
  Transmission Date: 20190418
  Serious: Yes (Death)
  Sender: FDA-Public Use
  Company Number: GB-TEVA-2019-GB-1013962

PATIENT
  Age: 70 Year
  Sex: Female
  Weight: 61 kg

DRUGS (13)
  1. CHLORHEXIDINE [Concomitant]
     Active Substance: CHLORHEXIDINE
  2. SODIUM CHLORIDE. [Concomitant]
     Active Substance: SODIUM CHLORIDE
  3. PREDNISOLONE. [Concomitant]
     Active Substance: PREDNISOLONE
  4. IPRATROPIUM [Concomitant]
     Active Substance: IPRATROPIUM
  5. DOCUSATE [Concomitant]
     Active Substance: DOCUSATE
  6. MEROPENEM. [Concomitant]
     Active Substance: MEROPENEM
  7. PARACETAMOL [Concomitant]
     Active Substance: ACETAMINOPHEN
  8. LANSOPRAZOLE. [Concomitant]
     Active Substance: LANSOPRAZOLE
  9. CARBOCISTEINE [Concomitant]
     Active Substance: CARBOCYSTEINE
  10. FLIXOTIDE [Concomitant]
     Active Substance: FLUTICASONE PROPIONATE
  11. ENOXAPARIN [Concomitant]
     Active Substance: ENOXAPARIN
  12. FLUMAZENIL. [Suspect]
     Active Substance: FLUMAZENIL
     Indication: REVERSAL OF SEDATION
     Dosage: UNKNOWN
     Route: 042
     Dates: start: 20181017, end: 20181017
  13. SALBUTAMOL [Concomitant]
     Active Substance: ALBUTEROL

REACTIONS (2)
  - Seizure [Fatal]
  - Cardiac arrest [Fatal]

NARRATIVE: CASE EVENT DATE: 20181017
